FAERS Safety Report 25437935 (Version 1)
Quarter: 2025Q2

REPORT INFORMATION
  Report Type: Spontaneous
  Country: CA (occurrence: CA)
  Receive Date: 20250616
  Receipt Date: 20250616
  Transmission Date: 20250716
  Serious: Yes (Life-Threatening, Disabling, Other)
  Sender: Haleon PLC
  Company Number: CA-HALEON-2247125

PATIENT
  Age: 56 Year

DRUGS (2)
  1. IBUPROFEN [Suspect]
     Active Substance: IBUPROFEN
     Indication: Back pain
     Route: 048
  2. IBUPROFEN [Suspect]
     Active Substance: IBUPROFEN
     Indication: Arthralgia

REACTIONS (11)
  - Large intestinal haemorrhage [Recovered/Resolved]
  - Bladder disorder [Recovered/Resolved]
  - Gait disturbance [Recovered/Resolved]
  - Mood swings [Recovered/Resolved]
  - Renal disorder [Recovered/Resolved]
  - Pain [Recovered/Resolved]
  - Psychotic disorder [Recovered/Resolved]
  - Rash [Recovered/Resolved]
  - Depression [Recovered/Resolved]
  - Confusional state [Recovered/Resolved]
  - Irritability [Recovered/Resolved]
